FAERS Safety Report 14062294 (Version 13)
Quarter: 2020Q2

REPORT INFORMATION
  Report Type: Spontaneous
  Country: US (occurrence: US)
  Receive Date: 20171009
  Receipt Date: 20200501
  Transmission Date: 20200713
  Serious: Yes (Hospitalization)
  Sender: FDA-Public Use
  Company Number: US-PFIZER INC-2017432126

PATIENT
  Age: 78 Year
  Sex: Female
  Weight: 54 kg

DRUGS (8)
  1. LYRICA [Suspect]
     Active Substance: PREGABALIN
     Indication: BACK PAIN
     Dosage: 150 MG, 4X/DAY
     Route: 048
  2. LYRICA [Suspect]
     Active Substance: PREGABALIN
     Indication: NEURALGIA
     Dosage: 150 MG, 4X/DAY
     Route: 048
     Dates: start: 2006
  3. LYRICA [Suspect]
     Active Substance: PREGABALIN
     Indication: PAIN
     Dosage: 50 MG, UNK
  4. TRAMADOL. [Concomitant]
     Active Substance: TRAMADOL
     Dosage: UNK
  5. LYRICA [Suspect]
     Active Substance: PREGABALIN
     Indication: SPINAL CORD INJURY
     Dosage: 100 MG, UNK
  6. LYRICA [Suspect]
     Active Substance: PREGABALIN
     Dosage: 150 MG, 3X/DAY (150MG EVERY 8 HOURS)
  7. LYRICA [Suspect]
     Active Substance: PREGABALIN
     Dosage: 150 MG, 4X/DAY (EVERY 6 HOURS)
     Route: 048
  8. LYRICA [Suspect]
     Active Substance: PREGABALIN
     Indication: SPINAL PAIN
     Dosage: 150 MG, 3X/DAY
     Route: 048
     Dates: start: 2011

REACTIONS (9)
  - Withdrawal syndrome [Unknown]
  - Drug ineffective [Unknown]
  - Intentional product use issue [Unknown]
  - Dysstasia [Unknown]
  - Urinary tract infection [Unknown]
  - Intervertebral disc degeneration [Unknown]
  - Blood oestrogen decreased [Unknown]
  - Paranoia [Unknown]
  - Gait disturbance [Unknown]
